FAERS Safety Report 26052071 (Version 2)
Quarter: 2025Q4

REPORT INFORMATION
  Report Type: Report from Study
  Country: US (occurrence: US)
  Receive Date: 20251117
  Receipt Date: 20251216
  Transmission Date: 20260118
  Serious: No
  Sender: ACADIA PHARMACEUTICALS
  Company Number: US-ACADIA PHARMACEUTICALS INC.-ACA-2025-PIM-012112

PATIENT
  Sex: Male

DRUGS (17)
  1. NUPLAZID [Suspect]
     Active Substance: PIMAVANSERIN TARTRATE
     Indication: Parkinson^s disease
     Dosage: 34 MILLIGRAM, QD
     Route: 048
     Dates: start: 20240807
  2. CEPHALEXIN [Concomitant]
     Active Substance: CEPHALEXIN
  3. OMEPRAZOLE [Concomitant]
     Active Substance: OMEPRAZOLE
  4. SILODOSIN [Concomitant]
     Active Substance: SILODOSIN
  5. VITAMIN B COMPLEX/B12 [VITAMIN B COMPLEX] [Concomitant]
  6. CARBIDOPA\LEVODOPA [Concomitant]
     Active Substance: CARBIDOPA\LEVODOPA
  7. BLUE-EMU LIDOCAINE PAIN RELIEF CREAM [Concomitant]
     Active Substance: LIDOCAINE HYDROCHLORIDE
     Dosage: SUPER STRENGHT
  8. LATANOPROST [Concomitant]
     Active Substance: LATANOPROST
  9. LEVOTHYROXINE [Concomitant]
     Active Substance: LEVOTHYROXINE
  10. LIDOCAINE [Concomitant]
     Active Substance: LIDOCAINE
     Route: 061
  11. MELATONIN [Concomitant]
     Active Substance: MELATONIN
  12. MIDODRINE [Concomitant]
     Active Substance: MIDODRINE
  13. QUETIAPINE [Concomitant]
     Active Substance: QUETIAPINE
  14. STOOL SOFTENER (DOCUSATE) [Concomitant]
     Active Substance: DOCUSATE
     Dosage: LAX
  15. TYLENOL [Concomitant]
     Active Substance: ACETAMINOPHEN
  16. VITAMIN D3 [Concomitant]
     Active Substance: CHOLECALCIFEROL
  17. XARELTO [Concomitant]
     Active Substance: RIVAROXABAN

REACTIONS (3)
  - Memory impairment [Recovered/Resolved]
  - Product dose omission issue [Recovered/Resolved]
  - Product dose omission issue [Unknown]
